FAERS Safety Report 10654580 (Version 1)
Quarter: 2014Q4

REPORT INFORMATION
  Report Type: Spontaneous
  Country: US (occurrence: None)
  Receive Date: 20141215
  Receipt Date: 20141215
  Transmission Date: 20150529
  Serious: No
  Sender: FDA-Public Use
  Company Number: None

PATIENT
  Age: 80 Year
  Sex: Female

DRUGS (1)
  1. METHOTREXATE [Suspect]
     Active Substance: METHOTREXATE
     Indication: ILL-DEFINED DISORDER
     Route: 058
     Dates: start: 201406

REACTIONS (3)
  - Contusion [None]
  - Fatigue [None]
  - Tremor [None]
